FAERS Safety Report 9964317 (Version 1)
Quarter: 2014Q1

REPORT INFORMATION
  Report Type: Spontaneous
  Country: US (occurrence: US)
  Receive Date: 20140305
  Receipt Date: 20140305
  Transmission Date: 20141002
  Serious: Yes (Death, Hospitalization)
  Sender: FDA-Public Use
  Company Number: US-GLAXOSMITHKLINE-A1063115A

PATIENT
  Age: 54 Year
  Sex: Male

DRUGS (7)
  1. ARIXTRA [Suspect]
     Indication: PULMONARY EMBOLISM
     Dosage: 7.5MG PER DAY
     Route: 058
     Dates: start: 20140102, end: 20140131
  2. LASIX [Concomitant]
  3. DILAUDID [Concomitant]
  4. RISPERDAL [Concomitant]
  5. ATIVAN [Concomitant]
  6. VITAMIN B12 [Concomitant]
  7. SENOKOT-S [Concomitant]

REACTIONS (2)
  - Death [Fatal]
  - Investigation [Unknown]
